FAERS Safety Report 24937400 (Version 1)
Quarter: 2025Q1

REPORT INFORMATION
  Report Type: Spontaneous
  Country: US (occurrence: US)
  Receive Date: 20250206
  Receipt Date: 20250206
  Transmission Date: 20250409
  Serious: Yes (Other)
  Sender: BRISTOL-MYERS SQUIBB COMPANY
  Company Number: US-BRISTOL-MYERS SQUIBB COMPANY-2025-017324

PATIENT
  Age: 72 Year
  Sex: Female

DRUGS (2)
  1. POMALYST [Suspect]
     Active Substance: POMALIDOMIDE
     Indication: Plasma cell myeloma refractory
     Dosage: TAKE 1 CAPSULE BY MOUTH 1 TIME A DAY FOR 7 DAYS ON, THEN 7 DAYS OFF AND REPEAT.
     Route: 048
     Dates: start: 202301
  2. NINLARO [Concomitant]
     Active Substance: IXAZOMIB CITRATE
     Dosage: TAKE 1 CAPSULE BY MOUTH ON DAYS 1, 8, 15 OF A 28 DAY CYCLE.
     Route: 048

REACTIONS (1)
  - Thrombosis [Unknown]

NARRATIVE: CASE EVENT DATE: 20250101
